FAERS Safety Report 10680188 (Version 1)
Quarter: 2014Q4

REPORT INFORMATION
  Report Type: Spontaneous
  Country: IT (occurrence: IT)
  Receive Date: 20141229
  Receipt Date: 20141229
  Transmission Date: 20150529
  Serious: Yes (Other)
  Sender: FDA-Public Use
  Company Number: IT-JNJFOC-20141211788

PATIENT
  Age: 60 Year
  Sex: Male

DRUGS (4)
  1. HALOPERIDOL. [Suspect]
     Active Substance: HALOPERIDOL
     Indication: HICCUPS
     Dosage: UPTO 6 MG FOR 6 WEEKS
     Route: 065
  2. CHLORPROMAZINE HYDROCHLORIDE. [Suspect]
     Active Substance: CHLORPROMAZINE HYDROCHLORIDE
     Indication: HICCUPS
     Dosage: UPTO 75 MG PER DAY FOR 4 WEEKS
     Route: 065
  3. BACLOFEN. [Suspect]
     Active Substance: BACLOFEN
     Indication: HICCUPS
     Dosage: UPTO 50 MG PER DAY FOR 6 WEEKS
     Route: 065
  4. GABAPENTIN. [Suspect]
     Active Substance: GABAPENTIN
     Indication: HICCUPS
     Dosage: UPTO 1800 MG PER DAY FOR 8 WEEKS
     Route: 065

REACTIONS (2)
  - Dyskinesia [Recovered/Resolved]
  - Somnolence [Recovered/Resolved]
